FAERS Safety Report 18370306 (Version 5)
Quarter: 2021Q1

REPORT INFORMATION
  Report Type: Spontaneous
  Country: FR (occurrence: FR)
  Receive Date: 20201012
  Receipt Date: 20210125
  Transmission Date: 20210419
  Serious: Yes (Death, Hospitalization, Other)
  Sender: FDA-Public Use
  Company Number: FR-ASTELLAS-2020US035885

PATIENT
  Age: 57 Year
  Sex: Male

DRUGS (2)
  1. XOSPATA [Suspect]
     Active Substance: GILTERITINIB
     Indication: ACUTE MYELOID LEUKAEMIA RECURRENT
     Dosage: 3 DF (120 MG), ONCE DAILY
     Route: 048
     Dates: start: 20200821, end: 20200922
  2. POSACONAZOLE [Concomitant]
     Active Substance: POSACONAZOLE
     Indication: PRODUCT USED FOR UNKNOWN INDICATION
     Dosage: UNK UNK, UNKNOWN FREQ.
     Route: 065

REACTIONS (4)
  - Aplasia [Unknown]
  - Gastrointestinal perforation [Fatal]
  - Septic shock [Fatal]
  - Clostridium colitis [Fatal]

NARRATIVE: CASE EVENT DATE: 20200922
